FAERS Safety Report 5782277-3 (Version None)
Quarter: 2008Q2

REPORT INFORMATION
  Report Type: 
  Country: None (occurrence: None)
  Receive Date: 20080623
  Receipt Date: 20080611
  Transmission Date: 20081010
  Serious: Yes (Disabling, Other)
  Sender: FDA-Public Use
  Company Number: GB-PFIZER INC-2006142023

PATIENT
  Age: 84 Year
  Sex: Male
  Weight: 80 kg

DRUGS (6)
  1. GABAPENTIN [Suspect]
     Indication: NEUROPATHY PERIPHERAL
     Route: 048
     Dates: start: 20060606, end: 20060708
  2. GABAPENTIN [Suspect]
     Indication: NEURALGIA
  3. ACETAMINOPHEN [Concomitant]
     Indication: PAIN IN EXTREMITY
     Route: 048
  4. SOFRAMYCIN [Concomitant]
     Indication: EYE INFECTION
     Route: 047
  5. TRAMADOL HCL [Concomitant]
     Indication: PAIN IN EXTREMITY
     Route: 048
     Dates: start: 20060602, end: 20060710
  6. DICLOFENAC SODIUM [Concomitant]
     Route: 048

REACTIONS (8)
  - ABASIA [None]
  - ARTHRALGIA [None]
  - ATAXIA [None]
  - CONDITION AGGRAVATED [None]
  - DIPLOPIA [None]
  - IMPAIRED DRIVING ABILITY [None]
  - MYALGIA [None]
  - PAIN [None]
